FAERS Safety Report 4506096-0 (Version None)
Quarter: 2004Q4

REPORT INFORMATION
  Report Type: 
  Country: None (occurrence: None)
  Receive Date: 20041025
  Receipt Date: 20040503
  Transmission Date: 20050328
  Serious: Yes (Hospitalization)
  Sender: FDA-Public Use
  Company Number: US-JNJFOC-20040500463

PATIENT
  Age: 27 Year
  Sex: Female
  Weight: 58.514 kg

DRUGS (8)
  1. REMICADE [Suspect]
     Indication: CROHN'S DISEASE
     Dosage: 5 MG/KG, INTRAVENOUS
     Route: 042
     Dates: start: 20031001
  2. REMICADE [Suspect]
     Indication: CROHN'S DISEASE
     Dosage: 5 MG/KG, INTRAVENOUS
     Route: 042
     Dates: start: 20040310
  3. ALDARA [Concomitant]
  4. AZACOL (MESALAZINE) [Concomitant]
  5. BIRTH CONTROL PILL (ORAL CONTRACEPTIVE NOS) [Concomitant]
  6. IRON (IRON) [Concomitant]
  7. PROCTOFOAM (PRAMOCAINE HYDROCHLORIDE) [Concomitant]
  8. PURINETHOL [Concomitant]

REACTIONS (1)
  - ACUTE RESPIRATORY DISTRESS SYNDROME [None]
